FAERS Safety Report 25544706 (Version 1)
Quarter: 2025Q3

REPORT INFORMATION
  Report Type: Spontaneous
  Country: US (occurrence: US)
  Receive Date: 20250711
  Receipt Date: 20250711
  Transmission Date: 20251021
  Serious: No
  Sender: SANOFI AVENTIS
  Company Number: US-SA-2025SA194931

PATIENT
  Age: 70 Year
  Sex: Female

DRUGS (1)
  1. FABRAZYME [Suspect]
     Active Substance: AGALSIDASE BETA
     Indication: Fabry^s disease
     Dosage: 65 MG, QOW
     Route: 042
     Dates: start: 201912, end: 202503

REACTIONS (4)
  - Rib fracture [Unknown]
  - Wrist fracture [Unknown]
  - Fall [Unknown]
  - Disease progression [Unknown]

NARRATIVE: CASE EVENT DATE: 20250101
